FAERS Safety Report 26198905 (Version 1)
Quarter: 2025Q4

REPORT INFORMATION
  Report Type: Spontaneous
  Country: JP (occurrence: JP)
  Receive Date: 20251225
  Receipt Date: 20251225
  Transmission Date: 20260118
  Serious: Yes (Other)
  Sender: TEVA
  Company Number: JP-MMM-Otsuka-UTIPEL2J

PATIENT
  Sex: Female

DRUGS (1)
  1. AJOVY [Suspect]
     Active Substance: FREMANEZUMAB-VFRM
     Indication: Product used for unknown indication
     Dosage: UNK (IT WAS USED AS A 12-WEEK ADMINISTRATION)
     Route: 065

REACTIONS (2)
  - Cerebral infarction [Unknown]
  - Arterial disorder [Unknown]
